FAERS Safety Report 14670372 (Version 1)
Quarter: 2018Q1

REPORT INFORMATION
  Report Type: Spontaneous
  Country: DE (occurrence: DE)
  Receive Date: 20180322
  Receipt Date: 20180322
  Transmission Date: 20180509
  Serious: Yes (Other)
  Sender: FDA-Public Use
  Company Number: DE-PFIZER INC-2018113113

PATIENT
  Age: 73 Year
  Sex: Female

DRUGS (6)
  1. METHOTREXATE SODIUM. [Interacting]
     Active Substance: METHOTREXATE SODIUM
     Dosage: INDUCTION PHASE I
     Route: 037
  2. RITUXIMAB. [Concomitant]
     Active Substance: RITUXIMAB
     Indication: ACUTE LYMPHOCYTIC LEUKAEMIA
     Dosage: IN GMALL ELDERLY REGIMEN, ON DAY 1, 2 AND 3
  3. ASPARAGINASE [Interacting]
     Active Substance: ASPARAGINASE
     Indication: ACUTE LYMPHOCYTIC LEUKAEMIA
     Dosage: INDUCTION PHASE I
  4. SPECTRILA [Interacting]
     Active Substance: ASPARAGINASE
     Indication: ACUTE LYMPHOCYTIC LEUKAEMIA
     Dosage: HIGH DOSE, IN GMALL ELDERLY REGIMEN, ON DAY 1, 2 AND 3
  5. METHOTREXATE SODIUM. [Suspect]
     Active Substance: METHOTREXATE SODIUM
     Indication: ACUTE LYMPHOCYTIC LEUKAEMIA
     Dosage: HIGH DOSE, IN GMALL ELDERLY REGIMEN ON DAY 1, 2 AND 3
  6. VINCRISTINE [Concomitant]
     Active Substance: VINCRISTINE
     Indication: ACUTE LYMPHOCYTIC LEUKAEMIA
     Dosage: INDUCTION PHASE I

REACTIONS (4)
  - Drug interaction [Unknown]
  - Hyperglycaemia [Unknown]
  - Paresis [Unknown]
  - Ketoacidosis [Unknown]
